FAERS Safety Report 5234470-6 (Version None)
Quarter: 2007Q1

REPORT INFORMATION
  Report Type: 
  Country: None (occurrence: None)
  Receive Date: 20070209
  Receipt Date: 20070131
  Transmission Date: 20070707
  Serious: Yes (Other)
  Sender: FDA-Public Use
  Company Number: PA-GLAXOSMITHKLINE-B0457686A

PATIENT
  Sex: Female

DRUGS (2)
  1. COMBIVIR [Suspect]
     Indication: HIV INFECTION
     Dosage: 2TAB PER DAY
     Dates: end: 20041118
  2. EFAVIRENZ [Suspect]
     Indication: HIV INFECTION
     Dosage: 600MG PER DAY
     Dates: end: 20041119

REACTIONS (2)
  - CONGENITAL OSTEODYSTROPHY [None]
  - DRUG EXPOSURE DURING PREGNANCY [None]
